FAERS Safety Report 11021367 (Version 2)
Quarter: 2018Q1

REPORT INFORMATION
  Report Type: Report from Study
  Country: None (occurrence: GB)
  Receive Date: 20150413
  Receipt Date: 20180330
  Transmission Date: 20180508
  Serious: Yes (Death)
  Sender: FDA-Public Use
  Company Number: GB-ABBVIE-15K-167-1374107-00

PATIENT
  Age: 84 Year
  Sex: Female

DRUGS (1)
  1. HUMIRA [Suspect]
     Active Substance: ADALIMUMAB
     Indication: RHEUMATOID ARTHRITIS
     Route: 058
     Dates: start: 20070212, end: 20070415

REACTIONS (3)
  - Rheumatoid arthritis [Fatal]
  - Cerebrovascular disorder [Fatal]
  - Death [Fatal]

NARRATIVE: CASE EVENT DATE: 20140730
